FAERS Safety Report 5750914-5 (Version None)
Quarter: 2008Q2

REPORT INFORMATION
  Report Type: 
  Country: None (occurrence: None)
  Receive Date: 20080528
  Receipt Date: 20080519
  Transmission Date: 20081010
  Serious: Yes (Other)
  Sender: FDA-Public Use
  Company Number: BR-BRISTOL-MYERS SQUIBB COMPANY-13655162

PATIENT
  Age: 26 Year
  Sex: Female

DRUGS (4)
  1. ABATACEPT [Suspect]
     Indication: SYSTEMIC LUPUS ERYTHEMATOSUS
     Route: 042
     Dates: start: 20060322, end: 20061128
  2. PREDNISOLONE [Concomitant]
     Dates: start: 20060322
  3. CHLOROQUINE PHOSPHATE [Concomitant]
     Dates: start: 20051104
  4. PREXIGE [Concomitant]
     Dates: start: 20051104

REACTIONS (1)
  - POLYNEUROPATHY [None]
